FAERS Safety Report 21724099 (Version 1)
Quarter: 2022Q4

REPORT INFORMATION
  Report Type: Spontaneous
  Country: US (occurrence: US)
  Receive Date: 20221213
  Receipt Date: 20221213
  Transmission Date: 20230113
  Serious: Yes (Other)
  Sender: FDA-Public Use
  Company Number: US-ALLERGAN-2240496US

PATIENT
  Sex: Female

DRUGS (1)
  1. QULIPTA [Suspect]
     Active Substance: ATOGEPANT
     Indication: Product used for unknown indication
     Dosage: UNK

REACTIONS (10)
  - Embolism [Unknown]
  - Loss of consciousness [Unknown]
  - Blood pressure decreased [Recovering/Resolving]
  - Vertigo [Unknown]
  - Thinking abnormal [Unknown]
  - Disturbance in attention [Unknown]
  - Balance disorder [Unknown]
  - Dysphemia [Unknown]
  - Tinnitus [Unknown]
  - Migraine [Recovering/Resolving]
